FAERS Safety Report 7124804-X (Version None)
Quarter: 2010Q4

REPORT INFORMATION
  Report Type: 
  Country: None (occurrence: None)
  Receive Date: 20101112
  Receipt Date: 20101029
  Transmission Date: 20110411
  Serious: Yes (Other)
  Sender: FDA-Public Use
  Company Number: 1000017209

PATIENT
  Age: 25 Year
  Sex: Female

DRUGS (1)
  1. ESCITALOPRAM [Suspect]
     Indication: MAJOR DEPRESSION
     Dosage: 10 MG (10 MG, 1 IN 1 D), ORAL
     Route: 048
     Dates: start: 20090901, end: 20090901

REACTIONS (5)
  - CHEST DISCOMFORT [None]
  - MUSCLE SPASMS [None]
  - OVERDOSE [None]
  - PHARYNGEAL DISORDER [None]
  - TONGUE DISORDER [None]
